FAERS Safety Report 23409820 (Version 3)
Quarter: 2025Q2

REPORT INFORMATION
  Report Type: Spontaneous
  Country: US (occurrence: US)
  Receive Date: 20240117
  Receipt Date: 20250617
  Transmission Date: 20250717
  Serious: No
  Sender: PFIZER
  Company Number: US-PFIZER INC-202300456067

PATIENT
  Age: 53 Year
  Sex: Male

DRUGS (3)
  1. CIBINQO [Suspect]
     Active Substance: ABROCITINIB
     Indication: Dermatitis atopic
     Dosage: 100 MG PO ONCE DAILY
     Route: 048
  2. CIBINQO [Suspect]
     Active Substance: ABROCITINIB
     Indication: Seborrhoeic dermatitis
  3. CIBINQO [Suspect]
     Active Substance: ABROCITINIB

REACTIONS (3)
  - Eczema [Unknown]
  - Product prescribing issue [Unknown]
  - Off label use [Unknown]
